FAERS Safety Report 5096236-X (Version None)
Quarter: 2006Q3

REPORT INFORMATION
  Report Type: 
  Country: None (occurrence: None)
  Receive Date: 20060905
  Receipt Date: 20060825
  Transmission Date: 20061208
  Serious: Yes (Hospitalization)
  Sender: FDA-Public Use
  Company Number: BR-ROCHE-460858

PATIENT
  Age: 13 Year
  Sex: Female
  Weight: 40 kg

DRUGS (2)
  1. RIVOTRIL [Suspect]
     Indication: PANIC DISORDER
     Route: 048
     Dates: start: 20060821, end: 20060823
  2. FLUOXETINE [Concomitant]
     Dates: start: 20060824

REACTIONS (10)
  - ABDOMINAL PAIN UPPER [None]
  - ASTHENIA [None]
  - CHEST PAIN [None]
  - COORDINATION ABNORMAL [None]
  - FEELING ABNORMAL [None]
  - HEADACHE [None]
  - NAUSEA [None]
  - PETIT MAL EPILEPSY [None]
  - PSYCHOTIC DISORDER [None]
  - TREMOR [None]
